FAERS Safety Report 13065074 (Version 1)
Quarter: 2016Q4

REPORT INFORMATION
  Report Type: Spontaneous
  Country: ME (occurrence: ME)
  Receive Date: 20161227
  Receipt Date: 20161227
  Transmission Date: 20170207
  Serious: Yes (Life-Threatening, Hospitalization, Other)
  Sender: FDA-Public Use
  Company Number: ME-JNJFOC-20161221869

PATIENT
  Age: 65 Year
  Sex: Female

DRUGS (3)
  1. PRESOLOL (METOPROLOL) [Suspect]
     Active Substance: METOPROLOL
     Indication: POISONING DELIBERATE
     Route: 048
     Dates: start: 20160516
  2. HALDOL [Suspect]
     Active Substance: HALOPERIDOL
     Indication: POISONING DELIBERATE
     Route: 048
     Dates: start: 20160516
  3. MENDILEX [Suspect]
     Active Substance: BIPERIDEN HYDROCHLORIDE
     Indication: POISONING
     Route: 048

REACTIONS (5)
  - Coma [Unknown]
  - Anuria [Unknown]
  - Overdose [Unknown]
  - Hypotension [Unknown]
  - Bradycardia [Unknown]

NARRATIVE: CASE EVENT DATE: 20160516
